FAERS Safety Report 20945161 (Version 1)
Quarter: 2022Q2

REPORT INFORMATION
  Report Type: Spontaneous
  Country: US (occurrence: None)
  Receive Date: 20220609
  Receipt Date: 20220609
  Transmission Date: 20220721
  Serious: Yes (Other)
  Sender: FDA-Public Use
  Company Number: None

PATIENT
  Age: 83 Year
  Sex: Male
  Weight: 88.45 kg

DRUGS (3)
  1. TIXAGEVIMAB [Suspect]
     Active Substance: TIXAGEVIMAB
     Indication: COVID-19 prophylaxis
     Dosage: FREQUENCY : ONCE;?
     Route: 030
     Dates: start: 20220317, end: 20220317
  2. CILGAVIMAB [Suspect]
     Active Substance: CILGAVIMAB
     Indication: COVID-19 prophylaxis
     Dosage: FREQUENCY : ONCE;?
     Route: 030
     Dates: start: 20220317, end: 20220317
  3. PAMBROLIZUMAB [Concomitant]

REACTIONS (2)
  - Enteric neuropathy [None]
  - Peripheral coldness [None]

NARRATIVE: CASE EVENT DATE: 20220318
